FAERS Safety Report 15710488 (Version 1)
Quarter: 2018Q4

REPORT INFORMATION
  Report Type: Report from Study
  Country: DE (occurrence: DE)
  Receive Date: 20181211
  Receipt Date: 20181211
  Transmission Date: 20190205
  Serious: Yes (Hospitalization, Other)
  Sender: FDA-Public Use
  Company Number: PHHY2017DE093207

PATIENT
  Age: 74 Year
  Sex: Male
  Weight: 80 kg

DRUGS (49)
  1. VOTRIENT [Suspect]
     Active Substance: PAZOPANIB HYDROCHLORIDE
     Dosage: 800 MG, QD
     Route: 048
     Dates: start: 20170720, end: 20171018
  2. KALINOR (CITRIC ACID\POTASSIUM BICARBONATE\POTASSIUM CITRATE) [Concomitant]
     Active Substance: CITRIC ACID MONOHYDRATE\POTASSIUM BICARBONATE\POTASSIUM CITRATE
     Indication: PROPHYLAXIS
     Dosage: 1.56 G, QD
     Route: 048
     Dates: start: 20160826, end: 20161122
  3. LERCANIDIPINE [Concomitant]
     Active Substance: LERCANIDIPINE
     Indication: HYPERTENSION
     Dosage: 20 MG, QD
     Route: 048
     Dates: start: 20160826
  4. L-THYROXIN BETA [Concomitant]
     Indication: SECONDARY HYPERTHYROIDISM
     Dosage: 50 UG, QD
     Route: 048
     Dates: start: 20160826, end: 20160921
  5. MARCUMAR [Concomitant]
     Active Substance: PHENPROCOUMON
     Dosage: DAILY DOSE: 1.5 MG MILLIGRAM(S) EVERY DAY
     Route: 048
     Dates: start: 20160922
  6. HYDROCORTISONE. [Concomitant]
     Active Substance: HYDROCORTISONE
     Dosage: 8.3 MG, TID
     Route: 048
     Dates: start: 20161224, end: 20170207
  7. HYDROCORTISONE. [Concomitant]
     Active Substance: HYDROCORTISONE
     Dosage: DAILY DOSE: 24.9 MG MILLIGRAM(S) EVERY DAY
     Route: 048
     Dates: start: 20161223, end: 20170207
  8. KALINOR (CITRIC ACID\POTASSIUM BICARBONATE\POTASSIUM CITRATE) [Concomitant]
     Active Substance: CITRIC ACID MONOHYDRATE\POTASSIUM BICARBONATE\POTASSIUM CITRATE
     Dosage: DAILY DOSE: 1.56 G GRAM(S) EVERY DAY
     Route: 048
     Dates: start: 20160826, end: 20161122
  9. TELMISARTAN. [Concomitant]
     Active Substance: TELMISARTAN
     Dosage: DAILY DOSE: 80 MG MILLIGRAM(S) EVERY DAY
     Route: 048
     Dates: start: 20060102
  10. FLUDROCORTISONE [Concomitant]
     Active Substance: FLUDROCORTISONE
     Indication: ADDISON^S DISEASE
     Dosage: 0.07 MG, QD
     Route: 048
     Dates: start: 20160922, end: 20161122
  11. L-THYROXIN HENNING [Concomitant]
     Active Substance: LEVOTHYROXINE SODIUM
     Indication: ADRENAL INSUFFICIENCY
     Dosage: 100 UG, QD
     Route: 048
     Dates: start: 20161123
  12. VOTRIENT [Suspect]
     Active Substance: PAZOPANIB HYDROCHLORIDE
     Dosage: 400 MG, QD
     Route: 048
     Dates: start: 20161228, end: 20170118
  13. SIMVABETA [Concomitant]
     Active Substance: SIMVASTATIN
     Dosage: DAILY DOSE: 10 MG MILLIGRAM(S) EVERY DAY
     Route: 048
     Dates: start: 20060102, end: 20161122
  14. FLUDROCORTISONE [Concomitant]
     Active Substance: FLUDROCORTISONE
     Dosage: 0.75 MG, QD
     Route: 048
     Dates: start: 20161123
  15. HCT-BETA [Concomitant]
     Indication: HYPERTENSION
     Dosage: 12.5 MG, QD
     Route: 048
     Dates: start: 20060102
  16. L-THYROXIN BETA [Concomitant]
     Dosage: DAILY DOSE: 75 ?G MICROGRAM(S) EVERY DAY
     Route: 048
     Dates: start: 20160922, end: 20161122
  17. TORASEMID-RATIOPHARM [Concomitant]
     Active Substance: TORSEMIDE
     Dosage: DAILY DOSE: 6.5 MG MILLIGRAM(S) EVERY DAY
     Route: 048
     Dates: start: 20160922
  18. HYDROCORTISONE. [Concomitant]
     Active Substance: HYDROCORTISONE
     Dosage: 6.8 MG, TID
     Route: 048
     Dates: start: 20161123, end: 20161223
  19. HYDROCORTISONE. [Concomitant]
     Active Substance: HYDROCORTISONE
     Dosage: DAILY DOSE: 20 MG MILLIGRAM(S) EVERY DAY
     Route: 048
     Dates: start: 20170424
  20. HYDROCORTISONE. [Concomitant]
     Active Substance: HYDROCORTISONE
     Dosage: DAILY DOSE: 20.4 MG MILLIGRAM(S) EVERY DAY
     Route: 048
     Dates: start: 20161123, end: 20161223
  21. HYDROCORTISONE. [Concomitant]
     Active Substance: HYDROCORTISONE
     Dosage: DAILY DOSE: 24 MG MILLIGRAM(S) EVERY DAY
     Route: 048
     Dates: start: 20160922, end: 20161122
  22. VOTRIENT [Suspect]
     Active Substance: PAZOPANIB HYDROCHLORIDE
     Indication: METASTATIC RENAL CELL CARCINOMA
     Dosage: 800 MG, QD
     Route: 048
     Dates: start: 20160721, end: 20161115
  23. VOTRIENT [Suspect]
     Active Substance: PAZOPANIB HYDROCHLORIDE
     Dosage: 400 MG, QD
     Route: 048
     Dates: start: 20170121, end: 20170719
  24. PANTOZOL [Concomitant]
     Active Substance: PANTOPRAZOLE SODIUM
     Dosage: DAILY DOSE: 20 MG MILLIGRAM(S) EVERY DAY
     Route: 048
     Dates: start: 19960108, end: 20161122
  25. L-THYROXIN BETA [Concomitant]
     Dosage: 75 UG, QD
     Route: 048
     Dates: start: 20160922, end: 20161122
  26. L-THYROXIN BETA [Concomitant]
     Dosage: DAILY DOSE: 50 ?G MICROGRAM(S) EVERY DAY
     Route: 048
     Dates: start: 20160826, end: 20160921
  27. MOXONIDIN-RATIOPHARM [Concomitant]
     Indication: HYPERTENSION
     Dosage: 0.2 MG, QD
     Route: 048
     Dates: start: 20160922
  28. VOTRIENT [Suspect]
     Active Substance: PAZOPANIB HYDROCHLORIDE
     Dosage: 400 MG, QD
     Route: 048
     Dates: start: 20171019, end: 20171129
  29. SIMVABETA [Concomitant]
     Active Substance: SIMVASTATIN
     Indication: HYPERTENSION
     Dosage: 10 MG, QD
     Route: 048
     Dates: start: 20060102, end: 20161122
  30. HCT-BETA [Concomitant]
     Dosage: DAILY DOSE: 12.5 MG MILLIGRAM(S) EVERY DAY
     Route: 048
     Dates: start: 20060102
  31. METOPROLOL-RATIOPHARM [Concomitant]
     Active Substance: METOPROLOL
     Indication: HYPERTENSION
     Dosage: 95 MG, BID
     Route: 048
     Dates: start: 20060102
  32. METOPROLOL-RATIOPHARM [Concomitant]
     Active Substance: METOPROLOL
     Dosage: DAILY DOSE: 190 MG MILLIGRAM(S) EVERY DAY
     Route: 048
     Dates: start: 20060102
  33. HYDROCORTISONE. [Concomitant]
     Active Substance: HYDROCORTISONE
     Dosage: 5 MG, BID
     Route: 048
     Dates: start: 20170208, end: 20170423
  34. VOTRIENT [Suspect]
     Active Substance: PAZOPANIB HYDROCHLORIDE
     Dosage: 400 MG, QD
     Route: 048
     Dates: start: 20161116, end: 20161222
  35. VOTRIENT [Suspect]
     Active Substance: PAZOPANIB HYDROCHLORIDE
     Dosage: 200 MG, QD
     Route: 048
     Dates: start: 20171130, end: 20180716
  36. DOXAZOSIN-RATIOPHARM [Concomitant]
     Indication: BENIGN PROSTATIC HYPERPLASIA
     Dosage: 2 MG, QD
     Route: 048
     Dates: start: 20060102
  37. MARCUMAR [Concomitant]
     Active Substance: PHENPROCOUMON
     Indication: PULMONARY EMBOLISM
     Dosage: 1.5 MG, QD
     Route: 048
     Dates: start: 20160922
  38. TORASEMID-RATIOPHARM [Concomitant]
     Active Substance: TORSEMIDE
     Indication: HYPERTENSION
     Dosage: 3.25 MG, BID
     Route: 048
     Dates: start: 20160922
  39. HYDROCORTISONE. [Concomitant]
     Active Substance: HYDROCORTISONE
     Dosage: 10 MG, BID
     Route: 048
     Dates: start: 20170424
  40. FLUDROCORTISONE [Concomitant]
     Active Substance: FLUDROCORTISONE
     Dosage: DAILY DOSE: 0.07 MG MILLIGRAM(S) EVERY DAY
     Route: 048
     Dates: start: 20160922, end: 20161122
  41. PANTOZOL [Concomitant]
     Active Substance: PANTOPRAZOLE SODIUM
     Indication: PROPHYLAXIS
     Dosage: 20 MG, QD
     Route: 048
     Dates: start: 19960108, end: 20161122
  42. TELMISARTAN. [Concomitant]
     Active Substance: TELMISARTAN
     Indication: HYPERTENSION
     Dosage: 80 MG, QD
     Route: 048
     Dates: start: 20060102
  43. XARELTO [Concomitant]
     Active Substance: RIVAROXABAN
     Indication: PULMONARY EMBOLISM
     Dosage: 10 MG, QD
     Route: 048
     Dates: start: 20060102, end: 20160921
  44. XARELTO [Concomitant]
     Active Substance: RIVAROXABAN
     Dosage: DAILY DOSE: 10 MG MILLIGRAM(S) EVERY DAY
     Route: 048
     Dates: start: 20060102, end: 20160921
  45. MOXONIDIN-RATIOPHARM [Concomitant]
     Dosage: DAILY DOSE: 0.2 MG MILLIGRAM(S) EVERY DAY
     Route: 048
     Dates: start: 20160922
  46. HYDROCORTISONE. [Concomitant]
     Active Substance: HYDROCORTISONE
     Indication: ADDISON^S DISEASE
     Dosage: 8 MG, TID
     Route: 048
     Dates: start: 20160922, end: 20161122
  47. HYDROCORTISONE. [Concomitant]
     Active Substance: HYDROCORTISONE
     Dosage: DAILY DOSE: 10 MG MILLIGRAM(S) EVERY DAY
     Route: 048
     Dates: start: 20170208, end: 20170423
  48. FLUDROCORTISONE [Concomitant]
     Active Substance: FLUDROCORTISONE
     Dosage: DAILY DOSE: 0.75 MG MILLIGRAM(S) EVERY DAY
     Route: 048
     Dates: start: 20161123
  49. L-THYROXIN HENNING [Concomitant]
     Active Substance: LEVOTHYROXINE SODIUM
     Dosage: DAILY DOSE: 100 ?G MICROGRAM(S) EVERY DAY
     Route: 048
     Dates: start: 20161123

REACTIONS (5)
  - Tooth abscess [Recovered/Resolved]
  - Glomerular filtration rate decreased [Unknown]
  - Blood creatinine increased [Unknown]
  - Spinal compression fracture [Recovered/Resolved]
  - C-reactive protein increased [Unknown]

NARRATIVE: CASE EVENT DATE: 20170607
